FAERS Safety Report 25205511 (Version 1)
Quarter: 2025Q2

REPORT INFORMATION
  Report Type: Spontaneous
  Country: CN (occurrence: CN)
  Receive Date: 20250417
  Receipt Date: 20250417
  Transmission Date: 20250717
  Serious: Yes (Hospitalization, Other)
  Sender: RANBAXY
  Company Number: CN-SUN PHARMACEUTICAL INDUSTRIES LTD-2025R1-503307

PATIENT
  Age: 47 Year
  Sex: Female

DRUGS (13)
  1. CARBOPLATIN [Suspect]
     Active Substance: CARBOPLATIN
     Indication: Ovarian cancer
     Route: 065
  2. CARBOPLATIN [Suspect]
     Active Substance: CARBOPLATIN
     Route: 065
     Dates: start: 202202, end: 202206
  3. CARBOPLATIN [Suspect]
     Active Substance: CARBOPLATIN
     Route: 065
     Dates: start: 202306, end: 202310
  4. DOCETAXEL [Suspect]
     Active Substance: DOCETAXEL
     Indication: Ovarian cancer
     Route: 065
     Dates: start: 202202, end: 202206
  5. PACLITAXEL [Suspect]
     Active Substance: PACLITAXEL
     Indication: Ovarian cancer
     Route: 065
  6. CATEQUENTINIB [Suspect]
     Active Substance: CATEQUENTINIB
     Indication: Ovarian cancer
     Route: 065
     Dates: start: 202108, end: 202201
  7. CATEQUENTINIB [Suspect]
     Active Substance: CATEQUENTINIB
     Route: 065
     Dates: start: 202208, end: 202303
  8. BEVACIZUMAB [Suspect]
     Active Substance: BEVACIZUMAB
     Indication: Ovarian cancer
     Route: 065
     Dates: start: 202202, end: 202206
  9. BEVACIZUMAB [Suspect]
     Active Substance: BEVACIZUMAB
     Route: 065
     Dates: start: 202306, end: 202310
  10. PACLITAXEL [Suspect]
     Active Substance: PACLITAXEL
     Indication: Ovarian cancer
     Route: 065
     Dates: start: 202306, end: 202310
  11. NIRAPARIB [Suspect]
     Active Substance: NIRAPARIB
     Indication: Ovarian cancer
     Route: 065
     Dates: start: 202010, end: 202107
  12. NIRAPARIB [Suspect]
     Active Substance: NIRAPARIB
     Route: 065
     Dates: start: 202108, end: 202201
  13. NIRAPARIB [Suspect]
     Active Substance: NIRAPARIB
     Route: 065
     Dates: start: 202208, end: 202303

REACTIONS (2)
  - Disease recurrence [Unknown]
  - Metastasis [Unknown]
